FAERS Safety Report 5480351-2 (Version None)
Quarter: 2007Q4

REPORT INFORMATION
  Report Type: 
  Country: None (occurrence: None)
  Receive Date: 20071004
  Receipt Date: 20071004
  Transmission Date: 20080405
  Serious: Yes (Hospitalization)
  Sender: FDA-Public Use
  Company Number: None

PATIENT
  Sex: Male
  Weight: 65 kg

DRUGS (4)
  1. FLUOROURACIL [Suspect]
     Dosage: 4816 MG
  2. ERBITUX [Suspect]
     Dosage: 430 MG
  3. LEUCOVORIN CALCIUM [Suspect]
     Dosage: 688 MG
  4. ELOXATIN [Suspect]
     Dosage: 146 MG

REACTIONS (7)
  - ASTHENIA [None]
  - BLOOD PRESSURE DECREASED [None]
  - DEHYDRATION [None]
  - FATIGUE [None]
  - HEART RATE INCREASED [None]
  - MUCOSAL INFLAMMATION [None]
  - PHARYNGOLARYNGEAL PAIN [None]
